FAERS Safety Report 5838904-5 (Version None)
Quarter: 2008Q3

REPORT INFORMATION
  Report Type: 
  Country: None (occurrence: None)
  Receive Date: 20080808
  Receipt Date: 20080731
  Transmission Date: 20090109
  Serious: Yes (Other)
  Sender: FDA-Public Use
  Company Number: PHHY2008DE16580

PATIENT
  Sex: Female

DRUGS (3)
  1. RASILEZ [Suspect]
     Indication: HYPERTENSION
     Dosage: 150 MG, UNK
     Dates: start: 20080501
  2. RASILEZ [Suspect]
     Dosage: UNK
     Dates: start: 20080101
  3. ANTIHYPERTENSIVES [Concomitant]

REACTIONS (1)
  - SINUS TACHYCARDIA [None]
